FAERS Safety Report 8364080-3 (Version None)
Quarter: 2012Q2

REPORT INFORMATION
  Report Type: 
  Country: None (occurrence: None)
  Receive Date: 20120516
  Receipt Date: 20120308
  Transmission Date: 20120825
  Serious: Yes (Hospitalization)
  Sender: FDA-Public Use
  Company Number: US-ALEXION-A201200378

PATIENT
  Sex: Female

DRUGS (2)
  1. SOLIRIS [Suspect]
     Indication: PAROXYSMAL NOCTURNAL HAEMOGLOBINURIA
     Dosage: 900 MG, Q2W
     Route: 042
  2. ALBUTEROL [Concomitant]
     Indication: NASOPHARYNGITIS
     Dosage: UNK, PRN

REACTIONS (3)
  - HAEMOGLOBIN DECREASED [None]
  - NASOPHARYNGITIS [None]
  - PYREXIA [None]
